FAERS Safety Report 14744196 (Version 1)
Quarter: 2018Q2

REPORT INFORMATION
  Report Type: Spontaneous
  Country: PT (occurrence: PT)
  Receive Date: 20180411
  Receipt Date: 20180411
  Transmission Date: 20180711
  Serious: Yes (Life-Threatening, Hospitalization, Other)
  Sender: FDA-Public Use
  Company Number: PT-LUPIN PHARMACEUTICALS INC.-2017-07952

PATIENT
  Age: 52 Year
  Sex: Male

DRUGS (2)
  1. MORPHINE [Suspect]
     Active Substance: MORPHINE
     Indication: SPINAL ANAESTHESIA
     Dosage: 0.25 MG, SINGLE
     Route: 037
  2. MORPHINE [Suspect]
     Active Substance: MORPHINE
     Indication: GENERAL ANAESTHESIA

REACTIONS (1)
  - Respiratory depression [Recovered/Resolved]
